FAERS Safety Report 11747728 (Version 2)
Quarter: 2015Q4

REPORT INFORMATION
  Report Type: Report from Study
  Country: US (occurrence: US)
  Receive Date: 20151117
  Receipt Date: 20151223
  Transmission Date: 20160304
  Serious: Yes (Hospitalization, Other)
  Sender: FDA-Public Use
  Company Number: US-GILEAD-2015-0181973

PATIENT
  Age: 52 Year
  Sex: Male

DRUGS (2)
  1. RANOLAZINE [Suspect]
     Active Substance: RANOLAZINE
     Indication: ANGINA PECTORIS
     Dosage: 500 MG, UNK
     Route: 048
  2. RANOLAZINE [Suspect]
     Active Substance: RANOLAZINE
     Dosage: 1000 MG, UNK
     Route: 048

REACTIONS (11)
  - Musculoskeletal chest pain [Unknown]
  - Lower limb fracture [Unknown]
  - Cough [Unknown]
  - Upper limb fracture [Unknown]
  - Implantable defibrillator insertion [Unknown]
  - Headache [Unknown]
  - Unevaluable event [Unknown]
  - Rib fracture [Unknown]
  - Myocardial infarction [Unknown]
  - Cardiac pacemaker insertion [Unknown]
  - Fall [Unknown]

NARRATIVE: CASE EVENT DATE: 2009
